FAERS Safety Report 7653681-3 (Version None)
Quarter: 2011Q3

REPORT INFORMATION
  Report Type: 
  Country: None (occurrence: None)
  Receive Date: 20110803
  Receipt Date: 20110728
  Transmission Date: 20111222
  Serious: Yes (Other)
  Sender: FDA-Public Use
  Company Number: JP-PFIZER INC-2011165592

PATIENT
  Age: 58 Year
  Sex: Female

DRUGS (5)
  1. IRINOTECAN HCL [Suspect]
     Indication: ADENOCARCINOMA
     Dosage: 150 MG/M2, UNK
  2. FLUOROURACIL [Suspect]
     Dosage: 2 MG/M2/46 H
     Route: 042
  3. OXALIPLATIN [Suspect]
     Indication: ADENOCARCINOMA
     Dosage: 85 MG/M2/2H
     Route: 042
  4. FLUOROURACIL [Suspect]
     Indication: ADENOCARCINOMA
     Dosage: 400 MG/M2, UNK
     Route: 042
  5. LEUCOVORIN CALCIUM [Suspect]
     Indication: ADENOCARCINOMA
     Dosage: 200 MG/M2, 2H
     Route: 042

REACTIONS (2)
  - LEUKOPENIA [None]
  - GASTROINTESTINAL TOXICITY [None]
